FAERS Safety Report 10328400 (Version 2)
Quarter: 2016Q1

REPORT INFORMATION
  Report Type: Report from Study
  Country: RU (occurrence: RU)
  Receive Date: 20140721
  Receipt Date: 20160328
  Transmission Date: 20160525
  Serious: Yes (Hospitalization, Other)
  Sender: FDA-Public Use
  Company Number: RU-JNJFOC-20140710221

PATIENT
  Age: 75 Year
  Sex: Male

DRUGS (7)
  1. XARELTO [Suspect]
     Active Substance: RIVAROXABAN
     Indication: ATRIAL FIBRILLATION
     Route: 065
     Dates: start: 201404
  2. XARELTO [Suspect]
     Active Substance: RIVAROXABAN
     Indication: THROMBOSIS PROPHYLAXIS
     Route: 065
     Dates: start: 201404
  3. VEROSPIRON [Concomitant]
     Active Substance: SPIRONOLACTONE
     Route: 065
  4. XARELTO [Suspect]
     Active Substance: RIVAROXABAN
     Indication: CEREBROVASCULAR ACCIDENT PROPHYLAXIS
     Route: 065
     Dates: start: 201404
  5. CARVEDILOL. [Concomitant]
     Active Substance: CARVEDILOL
     Route: 065
  6. FUROSEMIDE. [Concomitant]
     Active Substance: FUROSEMIDE
     Route: 065
  7. DIGOXIN. [Concomitant]
     Active Substance: DIGOXIN
     Route: 065

REACTIONS (4)
  - Angina unstable [Unknown]
  - Dyspnoea [Recovered/Resolved]
  - Angina unstable [Recovered/Resolved]
  - Oedema [Recovered/Resolved]

NARRATIVE: CASE EVENT DATE: 20140616
